FAERS Safety Report 14424523 (Version 1)
Quarter: 2018Q1

REPORT INFORMATION
  Report Type: Spontaneous
  Country: US (occurrence: US)
  Receive Date: 20180123
  Receipt Date: 20180123
  Transmission Date: 20180509
  Serious: No
  Sender: FDA-Public Use
  Company Number: US-PFIZER INC-2018028306

PATIENT
  Age: 3 Year
  Sex: Female

DRUGS (1)
  1. ADVIL [Suspect]
     Active Substance: IBUPROFEN

REACTIONS (4)
  - Crying [Unknown]
  - Product taste abnormal [Unknown]
  - Accidental exposure to product by child [Unknown]
  - Dysgeusia [Unknown]
